FAERS Safety Report 17127562 (Version 1)
Quarter: 2019Q4

REPORT INFORMATION
  Report Type: Spontaneous
  Country: CN (occurrence: CN)
  Receive Date: 20191209
  Receipt Date: 20191209
  Transmission Date: 20200122
  Serious: Yes (Hospitalization)
  Sender: FDA-Public Use
  Company Number: CN-ACCORD-164542

PATIENT
  Age: 9 Year
  Sex: Male

DRUGS (11)
  1. CHLORAL HYDRATE/CHLORAL HYDRATE DERIVATIVE [Concomitant]
     Active Substance: CHLORAL HYDRATE
  2. SACCHAROMYCES BOULARDII [Concomitant]
     Active Substance: SACCHAROMYCES CEREVISIAE
     Dosage: 0.25 G, BID
  3. CEFTRIAXONE. [Concomitant]
     Active Substance: CEFTRIAXONE
     Dosage: 1.5 G, QD
     Route: 042
  4. TRIHEXYPHENIDYL [Concomitant]
     Active Substance: TRIHEXYPHENIDYL
     Dosage: 1MG, BID
  5. TOPAMAX [Concomitant]
     Active Substance: TOPIRAMATE
     Dosage: 12.5?MG, BID
  6. ARIPIPRAZOLE. [Concomitant]
     Active Substance: ARIPIPRAZOLE
  7. MONTMORILLONITE [Concomitant]
     Active Substance: MONTMORILLONITE
     Dosage: 3 G, TID
  8. LAMOTRIGINE. [Concomitant]
     Active Substance: LAMOTRIGINE
     Indication: EPILEPSY
     Dosage: 62.5MG QM, 75MG?QN
  9. AMBROXOL [Concomitant]
     Active Substance: AMBROXOL
     Dosage: 15MG, QD
  10. CLONAZEPAM. [Suspect]
     Active Substance: CLONAZEPAM
     Indication: EPILEPSY
     Dosage: 1MG, TID?REDUCED TO 1MG BID
  11. VALPROIC ACID. [Concomitant]
     Active Substance: VALPROIC ACID
     Indication: EPILEPSY
     Dosage: 0.5 G, BID
     Dates: start: 201402

REACTIONS (1)
  - Increased bronchial secretion [Unknown]
